FAERS Safety Report 6193056-X (Version None)
Quarter: 2009Q2

REPORT INFORMATION
  Report Type: 
  Country: None (occurrence: None)
  Receive Date: 20090513
  Receipt Date: 20090513
  Transmission Date: 20091009
  Serious: Yes (Hospitalization, Other)
  Sender: FDA-Public Use
  Company Number: None

PATIENT
  Sex: Female
  Weight: 74.8435 kg

DRUGS (1)
  1. EVEROLIMUS ELUTING CORONARY STENT SYSTEM 100 UG/CM2  XIENCE V [Suspect]
     Indication: CATHETERISATION CARDIAC
     Dosage: 2.5MM X 12 MM  INTRA-ARTERIAL
     Route: 013
     Dates: start: 20090508, end: 20090508

REACTIONS (2)
  - COMPLICATION OF DEVICE INSERTION [None]
  - DEVICE BREAKAGE [None]
